APPROVED DRUG PRODUCT: PREVPAC (COPACKAGED)
Active Ingredient: AMOXICILLIN; CLARITHROMYCIN; LANSOPRAZOLE
Strength: 500MG;500MG;30MG **Federal Register determination that product was not discontinued or withdrawn for safety or effectiveness reasons**
Dosage Form/Route: CAPSULE, TABLET, CAPSULE, DELAYED REL PELLETS;ORAL
Application: N050757 | Product #001
Applicant: TAKEDA PHARMACEUTICALS USA INC
Approved: Dec 2, 1997 | RLD: Yes | RS: No | Type: DISCN